FAERS Safety Report 6443491-7 (Version None)
Quarter: 2009Q4

REPORT INFORMATION
  Report Type: 
  Country: None (occurrence: None)
  Receive Date: 20091117
  Receipt Date: 20091106
  Transmission Date: 20100525
  Serious: Yes (Hospitalization)
  Sender: FDA-Public Use
  Company Number: US-JNJFOC-20091007677

PATIENT
  Sex: Female
  Weight: 87.4 kg

DRUGS (8)
  1. INFLIXIMAB [Suspect]
     Indication: INFLAMMATORY BOWEL DISEASE
     Route: 042
  2. MESALAZINE (5-ASA) [Concomitant]
  3. METHOTREXATE [Concomitant]
  4. PREDNISONE [Concomitant]
  5. ERGOCALCIFEROL [Concomitant]
  6. IRON [Concomitant]
  7. FOLIC ACID [Concomitant]
  8. PREVACID [Concomitant]

REACTIONS (1)
  - ABDOMINAL PAIN [None]
